FAERS Safety Report 4612001-9 (Version None)
Quarter: 2005Q2

REPORT INFORMATION
  Report Type: 
  Country: None (occurrence: None)
  Receive Date: 20050308
  Receipt Date: 20041130
  Transmission Date: 20051028
  Serious: Yes (Other)
  Sender: FDA-Public Use
  Company Number: 2004UW24619

PATIENT
  Age: 70 Year
  Sex: Female
  Weight: 66.038 kg

DRUGS (4)
  1. CRESTOR [Suspect]
     Indication: BLOOD CHOLESTEROL INCREASED
  2. CRESTOR [Suspect]
     Indication: BLOOD TRIGLYCERIDES
  3. LOPRESSOR [Concomitant]
  4. ZESTRIL [Concomitant]

REACTIONS (2)
  - ILL-DEFINED DISORDER [None]
  - MYALGIA [None]
